FAERS Safety Report 9870974 (Version 3)
Quarter: 2014Q2

REPORT INFORMATION
  Report Type: Spontaneous
  Country: US (occurrence: None)
  Receive Date: 20140203
  Receipt Date: 20140519
  Transmission Date: 20141212
  Serious: Yes (Hospitalization, Other)
  Sender: FDA-Public Use
  Company Number: ADR-2014-00149

PATIENT
  Age: 42 Year
  Sex: Female

DRUGS (2)
  1. BACLOFEN INTRATHECAL [Suspect]
     Indication: SPINAL PAIN
  2. UNSPECIFIED MEDICATIONS [Suspect]

REACTIONS (14)
  - Dehydration [None]
  - Abnormal dreams [None]
  - Lethargy [None]
  - Hypersomnia [None]
  - Vomiting [None]
  - Headache [None]
  - Asthenia [None]
  - Incoherent [None]
  - Speech disorder [None]
  - Pain [None]
  - No therapeutic response [None]
  - Implant site pain [None]
  - Post lumbar puncture syndrome [None]
  - Medical device discomfort [None]
